FAERS Safety Report 18729857 (Version 2)
Quarter: 2021Q3

REPORT INFORMATION
  Report Type: Spontaneous
  Country: IT (occurrence: IT)
  Receive Date: 20210112
  Receipt Date: 20210701
  Transmission Date: 20211014
  Serious: Yes (Hospitalization, Other)
  Sender: FDA-Public Use
  Company Number: IT-MYLANLABS-2020M1086081

PATIENT
  Age: 60 Year
  Sex: Female

DRUGS (4)
  1. CISPLATIN. [Suspect]
     Active Substance: CISPLATIN
     Indication: TONSIL CANCER
     Dosage: INFUSED AT PERSONALIZED DOSAGE FOR ONLY ONE CYCLE
     Route: 065
     Dates: start: 2017
  2. NIVOLUMAB [Suspect]
     Active Substance: NIVOLUMAB
     Indication: TONSIL CANCER
     Dosage: 240 MILLIGRAM, Q2W/RECEIVED 9 INFUSION
     Route: 065
     Dates: start: 2018
  3. PACLITAXEL. [Suspect]
     Active Substance: PACLITAXEL
     Indication: TONSIL CANCER
     Dosage: INFUSED AT A PERSONALIZED DOSAGE FOR ONLY ONE CYCLE
     Route: 065
     Dates: start: 2017
  4. CETUXIMAB. [Suspect]
     Active Substance: CETUXIMAB
     Indication: TONSIL CANCER
     Dosage: INFUSED AT A PERSONALIZED DOSAGE FOR ONLY ONE CYCLE
     Route: 065
     Dates: start: 2017

REACTIONS (5)
  - Sepsis [Unknown]
  - Pancytopenia [Unknown]
  - Toxicity to various agents [Recovered/Resolved]
  - Product use in unapproved indication [Unknown]
  - Off label use [Unknown]
